FAERS Safety Report 14145752 (Version 1)
Quarter: 2017Q4

REPORT INFORMATION
  Report Type: Spontaneous
  Country: ES (occurrence: ES)
  Receive Date: 20171031
  Receipt Date: 20171031
  Transmission Date: 20180321
  Serious: Yes (Hospitalization)
  Sender: FDA-Public Use
  Company Number: ES-PFIZER INC-2017465718

PATIENT
  Age: 87 Year
  Sex: Female

DRUGS (17)
  1. ENALAPRIL [Concomitant]
     Active Substance: ENALAPRIL
     Indication: HYPERTENSION
     Dosage: 5 MG 1X/DAY (1-0-0)
     Route: 048
  2. SYRON [Concomitant]
     Dosage: 40 MG, 1X/DAY (1-0-0)
     Route: 048
     Dates: end: 20170913
  3. OMEPRAZOLE. [Concomitant]
     Active Substance: OMEPRAZOLE
     Dosage: 20 MG, 1X/DAY (1-0-0)
     Route: 048
  4. SYNALAR RECTAL /02340001/ [Concomitant]
     Dosage: UNK UNK, 2X/DAY (1-0-1)
  5. LYRICA [Suspect]
     Active Substance: PREGABALIN
     Route: 048
     Dates: start: 201707, end: 20170913
  6. METFORMIN [Concomitant]
     Active Substance: METFORMIN HYDROCHLORIDE
     Indication: TYPE 2 DIABETES MELLITUS
     Dosage: 850 MG, 1X/DAY (0-1-0)
     Route: 048
  7. BIMATOPROST. [Concomitant]
     Active Substance: BIMATOPROST
     Dosage: UNK UNK, 1X/DAY
  8. DIAMICRON [Concomitant]
     Active Substance: GLICLAZIDE
     Indication: TYPE 2 DIABETES MELLITUS
     Dosage: 60 MG, 1X/DAY
     Route: 048
  9. IVABRADINE [Concomitant]
     Active Substance: IVABRADINE
     Dosage: 5 MG, 2X/DAY (1-0-1)
     Route: 048
     Dates: end: 20170913
  10. LACTULOSE. [Concomitant]
     Active Substance: LACTULOSE
     Dosage: 10 G, 2X/DAY (1-0-1)
     Route: 048
  11. ADIRO [Concomitant]
     Active Substance: ASPIRIN
     Dosage: 100 MG, 1X/DAY (0-1-0)
     Route: 048
  12. INEGY [Concomitant]
     Active Substance: EZETIMIBE\SIMVASTATIN
     Dosage: 1 DF (10/20 MG) 1X/DAY (0-0-1)
     Route: 048
     Dates: end: 20170913
  13. AZARGA [Concomitant]
     Active Substance: BRINZOLAMIDE\TIMOLOL MALEATE
     Dosage: 1 GTT, 2X/DAY
     Route: 047
  14. MONUROL [Concomitant]
     Active Substance: FOSFOMYCIN TROMETHAMINE
     Dosage: 3 G, 1 SACHETT EVERY 10 DAYS
  15. TRAMADOL. [Concomitant]
     Active Substance: TRAMADOL
     Dosage: 75 MG, 2X/DAY (1-0-1)
     Route: 048
  16. VENORUTON /00055501/ [Concomitant]
     Dosage: 1 G, 1X/DAY (1-0-0)
  17. PARACETAMOL [Concomitant]
     Active Substance: ACETAMINOPHEN
     Dosage: 1 G, 2X/DAY (1-0-1)

REACTIONS (4)
  - Condition aggravated [Recovered/Resolved]
  - Hyponatraemia [Recovered/Resolved]
  - Inappropriate antidiuretic hormone secretion [Recovered/Resolved]
  - Fall [Unknown]

NARRATIVE: CASE EVENT DATE: 20170913
